FAERS Safety Report 24771091 (Version 1)
Quarter: 2024Q4

REPORT INFORMATION
  Report Type: Spontaneous
  Country: US (occurrence: None)
  Receive Date: 20241224
  Receipt Date: 20241224
  Transmission Date: 20250114
  Serious: Yes (Other)
  Sender: Public
  Company Number: None

PATIENT
  Age: 64 Year
  Sex: Female
  Weight: 81 kg

DRUGS (5)
  1. PAXLOVID [Suspect]
     Active Substance: NIRMATRELVIR\RITONAVIR
     Indication: COVID-19
     Dosage: ?3 TABLETS TWICE A DAY ORAL
     Route: 048
     Dates: start: 20241216, end: 20241218
  2. PACLITAXEL [Suspect]
     Active Substance: PACLITAXEL
  3. GEMCITABINE [Suspect]
     Active Substance: GEMCITABINE
  4. Creon 360 [Concomitant]
  5. Vitamin D3 with K2 [Concomitant]

REACTIONS (3)
  - Alopecia [None]
  - Paraesthesia [None]
  - Skin disorder [None]

NARRATIVE: CASE EVENT DATE: 20241219
